FAERS Safety Report 17589080 (Version 1)
Quarter: 2020Q1

REPORT INFORMATION
  Report Type: Report from Study
  Country: PT (occurrence: PT)
  Receive Date: 20200327
  Receipt Date: 20200327
  Transmission Date: 20200409
  Serious: Yes (Other)
  Sender: FDA-Public Use
  Company Number: PT-BAXTER-2020BAX006823

PATIENT
  Age: 50 Year
  Sex: Female
  Weight: 54 kg

DRUGS (8)
  1. METHOTREXATE. [Suspect]
     Active Substance: METHOTREXATE
     Indication: DIFFUSE LARGE B-CELL LYMPHOMA
     Route: 065
     Dates: start: 201709, end: 201803
  2. POLATUZUMAB VEDOTIN. [Concomitant]
     Active Substance: POLATUZUMAB VEDOTIN
     Indication: PRODUCT USED FOR UNKNOWN INDICATION
     Route: 065
     Dates: end: 20200303
  3. ENDOXAN PO PARA SOLUCAO INJECTAVEL 1000 MG [Suspect]
     Active Substance: CYCLOPHOSPHAMIDE
     Indication: RHEUMATOID ARTHRITIS
  4. PREDNISONE. [Suspect]
     Active Substance: PREDNISONE
     Indication: DIFFUSE LARGE B-CELL LYMPHOMA
     Route: 065
     Dates: start: 201709, end: 201803
  5. DOXIL [Suspect]
     Active Substance: DOXORUBICIN HYDROCHLORIDE
     Indication: DIFFUSE LARGE B-CELL LYMPHOMA
     Route: 065
     Dates: start: 201709, end: 201803
  6. ENDOXAN PO PARA SOLUCAO INJECTAVEL 1000 MG [Suspect]
     Active Substance: CYCLOPHOSPHAMIDE
     Indication: DIFFUSE LARGE B-CELL LYMPHOMA
     Route: 065
     Dates: start: 201709, end: 201803
  7. VINCRISTINE SULFATE. [Suspect]
     Active Substance: VINCRISTINE SULFATE
     Indication: DIFFUSE LARGE B-CELL LYMPHOMA
     Route: 065
     Dates: start: 201709, end: 201803
  8. RITUXIMAB. [Suspect]
     Active Substance: RITUXIMAB
     Indication: RHEUMATOID ARTHRITIS
     Route: 065
     Dates: start: 201709, end: 201803

REACTIONS (3)
  - Diffuse large B-cell lymphoma refractory [Unknown]
  - Deep vein thrombosis [Unknown]
  - Disease recurrence [Unknown]

NARRATIVE: CASE EVENT DATE: 201808
